FAERS Safety Report 17575391 (Version 3)
Quarter: 2025Q2

REPORT INFORMATION
  Report Type: Spontaneous
  Country: NL (occurrence: NL)
  Receive Date: 20200324
  Receipt Date: 20250429
  Transmission Date: 20250717
  Serious: Yes (Other)
  Sender: AUROBINDO
  Company Number: NL-002147023-NVSC2020NL066842

PATIENT
  Sex: Female

DRUGS (3)
  1. DIAZEPAM [Suspect]
     Active Substance: DIAZEPAM
     Indication: Pain
     Route: 065
  2. ACETAMINOPHEN [Suspect]
     Active Substance: ACETAMINOPHEN
     Indication: Pain
     Route: 065
  3. TRAMADOL [Suspect]
     Active Substance: TRAMADOL
     Indication: Pain
     Route: 065

REACTIONS (6)
  - Dementia [Not Recovered/Not Resolved]
  - Urosepsis [Unknown]
  - Joint swelling [Unknown]
  - Limb discomfort [Unknown]
  - Limb deformity [Unknown]
  - Fracture [Unknown]
